FAERS Safety Report 5915174-0 (Version None)
Quarter: 2008Q4

REPORT INFORMATION
  Report Type: 
  Country: None (occurrence: None)
  Receive Date: 20081010
  Receipt Date: 20081001
  Transmission Date: 20090506
  Serious: Yes (Life-Threatening, Hospitalization)
  Sender: FDA-Public Use
  Company Number: AU-BAYER-200825793GPV

PATIENT
  Age: 47 Year
  Sex: Female

DRUGS (2)
  1. YASMIN [Suspect]
     Indication: CONTRACEPTION
     Route: 048
  2. CELAPRAM / CITALOPRAM HYDROBROMIDE [Concomitant]
     Indication: DEPRESSION

REACTIONS (2)
  - DYSPNOEA [None]
  - PULMONARY EMBOLISM [None]
